FAERS Safety Report 11787371 (Version 1)
Quarter: 2015Q4

REPORT INFORMATION
  Report Type: Spontaneous
  Country: FR (occurrence: FR)
  Receive Date: 20151130
  Receipt Date: 20151130
  Transmission Date: 20160305
  Serious: Yes (Hospitalization)
  Sender: FDA-Public Use
  Company Number: FR-GE HEALTHCARE MEDICAL DIAGNOSTICS-OMPQ-PR-1511S-3066

PATIENT
  Age: 92 Year
  Sex: Female

DRUGS (9)
  1. OMNIPAQUE [Suspect]
     Active Substance: IOHEXOL
     Indication: GASTROINTESTINAL OBSTRUCTION
     Dosage: DOSE NOT REPORTED
     Route: 042
     Dates: start: 20150924, end: 20150924
  2. OMNIPAQUE [Suspect]
     Active Substance: IOHEXOL
     Indication: DIAGNOSTIC PROCEDURE
  3. ROCEPHINE [Concomitant]
     Active Substance: CEFTRIAXONE SODIUM
     Indication: KLEBSIELLA INFECTION
     Dates: start: 20150924, end: 20150927
  4. FORLAX [Concomitant]
     Active Substance: POLYETHYLENE GLYCOL 4000
  5. EFFEXOR [Concomitant]
     Active Substance: VENLAFAXINE HYDROCHLORIDE
  6. EBIXA [Concomitant]
     Active Substance: MEMANTINE HYDROCHLORIDE
  7. CIPROFLOXACINE MYLAN [Suspect]
     Active Substance: CIPROFLOXACIN
     Route: 048
     Dates: start: 20150927, end: 20150930
  8. ROCEPHINE [Concomitant]
     Active Substance: CEFTRIAXONE SODIUM
     Dates: start: 20150930
  9. COVERAM [Concomitant]
     Active Substance: AMLODIPINE\PERINDOPRIL

REACTIONS (1)
  - Acute kidney injury [Recovered/Resolved]

NARRATIVE: CASE EVENT DATE: 20150930
